FAERS Safety Report 6574451-3 (Version None)
Quarter: 2010Q1

REPORT INFORMATION
  Report Type: 
  Country: None (occurrence: None)
  Receive Date: 20100209
  Receipt Date: 20090630
  Transmission Date: 20100710
  Serious: No
  Sender: FDA-Public Use
  Company Number: A0794664A

PATIENT
  Age: 36 Year
  Sex: Female

DRUGS (2)
  1. PAROXETINE HCL [Suspect]
     Indication: DEPRESSION
     Dosage: 30MG PER DAY
     Route: 048
     Dates: start: 20070101
  2. NEXIUM [Concomitant]

REACTIONS (3)
  - ANXIETY [None]
  - DRUG INEFFECTIVE [None]
  - EMOTIONAL DISORDER [None]
